FAERS Safety Report 17267712 (Version 1)
Quarter: 2020Q1

REPORT INFORMATION
  Report Type: Spontaneous
  Country: US (occurrence: US)
  Receive Date: 20200114
  Receipt Date: 20200114
  Transmission Date: 20200409
  Serious: No
  Sender: FDA-Public Use
  Company Number: US-VERTEX PHARMACEUTICALS-2020-000160

PATIENT
  Sex: Male

DRUGS (16)
  1. ALBUTEROL [SALBUTAMOL] [Concomitant]
     Active Substance: ALBUTEROL
  2. ATENOLOL. [Concomitant]
     Active Substance: ATENOLOL
  3. MEPHYTON [Concomitant]
     Active Substance: PHYTONADIONE
  4. TOBRAMYCIN. [Concomitant]
     Active Substance: TOBRAMYCIN
  5. PREDNISONE. [Concomitant]
     Active Substance: PREDNISONE
  6. TRIKAFTA [Suspect]
     Active Substance: ELEXACAFTOR\IVACAFTOR\TEZACAFTOR
     Indication: CYSTIC FIBROSIS
     Dosage: 2 ORANGE TABS IN THE AM AND 1 BLUE TAB IN THE PM
     Route: 048
     Dates: start: 201911
  7. FLONASE [Concomitant]
     Active Substance: FLUTICASONE PROPIONATE
  8. ADVAIR HFA [Concomitant]
     Active Substance: FLUTICASONE PROPIONATE\SALMETEROL XINAFOATE
  9. PROAIR HFA [Concomitant]
     Active Substance: ALBUTEROL SULFATE
  10. AMLODIPINE [Concomitant]
     Active Substance: AMLODIPINE BESYLATE
  11. CAYSTON [Concomitant]
     Active Substance: AZTREONAM
  12. PULMOZYME [Concomitant]
     Active Substance: DORNASE ALFA
  13. ESOMEPRAZOLE. [Concomitant]
     Active Substance: ESOMEPRAZOLE MAGNESIUM
  14. SODIUM CHLORIDE. [Concomitant]
     Active Substance: SODIUM CHLORIDE
  15. GLUCOSAMINE + CHONDROITIN [CHONDROITIN SULFATE;GLUCOSAMINE] [Concomitant]
  16. CREON [Concomitant]
     Active Substance: PANCRELIPASE AMYLASE\PANCRELIPASE LIPASE\PANCRELIPASE PROTEASE

REACTIONS (3)
  - Nasopharyngitis [Unknown]
  - Wheezing [Unknown]
  - Rash [Recovered/Resolved]
